FAERS Safety Report 11585587 (Version 2)
Quarter: 2015Q4

REPORT INFORMATION
  Report Type: Spontaneous
  Country: US (occurrence: US)
  Receive Date: 20151001
  Receipt Date: 20151109
  Transmission Date: 20160304
  Serious: Yes (Other)
  Sender: FDA-Public Use
  Company Number: US-GLAXOSMITHKLINE-US2015139287

PATIENT
  Age: 72 Year
  Sex: Male

DRUGS (1)
  1. NICORETTE [Suspect]
     Active Substance: NICOTINE
     Indication: SMOKING CESSATION THERAPY
     Dosage: 4 MG, UNK

REACTIONS (8)
  - Blood potassium decreased [Recovered/Resolved]
  - Retching [Recovered/Resolved]
  - Laceration [Recovered/Resolved]
  - Weight decreased [Not Recovered/Not Resolved]
  - Product quality issue [Unknown]
  - Dysphagia [Recovered/Resolved]
  - Choking sensation [Not Recovered/Not Resolved]
  - Throat irritation [Recovered/Resolved]
